FAERS Safety Report 8043614-2 (Version None)
Quarter: 2012Q1

REPORT INFORMATION
  Report Type: 
  Country: None (occurrence: None)
  Receive Date: 20120112
  Receipt Date: 20120112
  Transmission Date: 20120608
  Serious: Yes (Other)
  Sender: FDA-Public Use
  Company Number: GB-ABBOTT-12P-167-0892444-00

PATIENT
  Age: 11 Year
  Sex: Male
  Weight: 31.8 kg

DRUGS (7)
  1. ERYTHROMYCIN [Suspect]
     Dates: start: 20111222
  2. ERYTHROMYCIN [Suspect]
     Dates: start: 20111102, end: 20111109
  3. ALBUTEROL SULFATE AUTOHALER [Concomitant]
     Indication: PRODUCT USED FOR UNKNOWN INDICATION
     Dates: start: 20111031, end: 20111226
  4. ERYTHROMYCIN [Suspect]
     Indication: PRODUCT USED FOR UNKNOWN INDICATION
     Route: 065
     Dates: start: 20110930, end: 20111007
  5. PREDNISOLONE [Concomitant]
     Indication: PRODUCT USED FOR UNKNOWN INDICATION
     Dates: start: 20111102
  6. BECLOMETHASONE DIPROPIONATE [Concomitant]
     Indication: PRODUCT USED FOR UNKNOWN INDICATION
     Dates: start: 20111109
  7. PHOLCODINE [Concomitant]
     Indication: PRODUCT USED FOR UNKNOWN INDICATION
     Dates: start: 20111102, end: 20111112

REACTIONS (1)
  - MOUTH ULCERATION [None]
